FAERS Safety Report 14380160 (Version 1)
Quarter: 2018Q1

REPORT INFORMATION
  Report Type: Spontaneous
  Country: US (occurrence: US)
  Receive Date: 20180112
  Receipt Date: 20180112
  Transmission Date: 20180509
  Serious: Yes (Other)
  Sender: FDA-Public Use
  Company Number: US-BAYER-2018-002145

PATIENT

DRUGS (2)
  1. CIPRO [Suspect]
     Active Substance: CIPROFLOXACIN HYDROCHLORIDE
     Indication: URINARY TRACT INFECTION
     Dosage: 500 MG, BID
     Dates: start: 20140829, end: 2014
  2. MACRODANTIN [Concomitant]
     Active Substance: NITROFURANTOIN
     Indication: BACTERIAL INFECTION
     Dosage: 100 MG, QID

REACTIONS (9)
  - Tendon rupture [None]
  - Tendon disorder [None]
  - Musculoskeletal pain [Not Recovered/Not Resolved]
  - Cartilage injury [None]
  - Loss of personal independence in daily activities [None]
  - Rotator cuff syndrome [None]
  - Musculoskeletal pain [Not Recovered/Not Resolved]
  - Urinary tract infection [None]
  - Pain [Not Recovered/Not Resolved]

NARRATIVE: CASE EVENT DATE: 2014
